FAERS Safety Report 6463139-5 (Version None)
Quarter: 2009Q4

REPORT INFORMATION
  Report Type: 
  Country: None (occurrence: None)
  Receive Date: 20091123
  Receipt Date: 20091112
  Transmission Date: 20100525
  Serious: Yes (Other)
  Sender: FDA-Public Use
  Company Number: 2009SP003083

PATIENT
  Age: 58 Year
  Sex: Female

DRUGS (10)
  1. XOPENEX [Suspect]
     Indication: ASTHMA
     Dosage: 1.25 MMG/3ML;PRN;INHALATION
     Route: 055
     Dates: start: 20090105
  2. XOPENEX HFA [Suspect]
     Indication: ASTHMA
     Dosage: 90 UG;QD;INHALATION; 45 UG;HS;INHALATION
     Route: 055
     Dates: start: 20090105
  3. XOPENEX HFA [Suspect]
     Indication: ASTHMA
     Dosage: 90 UG;QD;INHALATION; 45 UG;HS;INHALATION
     Route: 055
     Dates: start: 20090105
  4. ALVESCO INHALATION [Concomitant]
  5. AEROSOL [Concomitant]
  6. KLONOPIN [Concomitant]
  7. NORETHINDRONE AND ETHINYL ESTRADIOL [Concomitant]
  8. ALBUTEROL [Concomitant]
  9. ALENDRONATE SODIUM [Concomitant]
  10. FLORINEF [Concomitant]

REACTIONS (3)
  - HAEMOPTYSIS [None]
  - HEART VALVE INCOMPETENCE [None]
  - MITRAL VALVE DISEASE [None]
